FAERS Safety Report 22242913 (Version 3)
Quarter: 2023Q2

REPORT INFORMATION
  Report Type: Report from Study
  Country: AU (occurrence: None)
  Receive Date: 20230424
  Receipt Date: 20230522
  Transmission Date: 20230721
  Serious: Yes (Hospitalization)
  Sender: FDA-Public Use
  Company Number: AU-ROCHE-3334227

PATIENT
  Age: 69 Year
  Sex: Female
  Weight: 63 kg

DRUGS (2)
  1. ALECTINIB [Suspect]
     Active Substance: ALECTINIB
     Indication: Squamous cell carcinoma of head and neck
     Dosage: 12 DAYS - CYCLE 1, LAST DOSE ADMINISTERED WAS 600 MG
     Route: 048
     Dates: start: 20230329, end: 20230410
  2. ALECTINIB [Suspect]
     Active Substance: ALECTINIB
     Indication: Keratinising squamous cell carcinoma of nasopharynx

REACTIONS (2)
  - Anaphylactic reaction [Recovered/Resolved]
  - Dermatitis acneiform [Recovered/Resolved]

NARRATIVE: CASE EVENT DATE: 20230409
